FAERS Safety Report 8823177 (Version 1)
Quarter: 2012Q4

REPORT INFORMATION
  Report Type: 
  Country: US (occurrence: US)
  Receive Date: 20121003
  Receipt Date: 20121003
  Transmission Date: 20130627
  Serious: No
  Sender: FDA-Public Use
  Company Number: US-PFIZER INC-2012244013

PATIENT

DRUGS (2)
  1. LYRICA [Suspect]
     Dosage: UNK
     Dates: start: 20110809
  2. PRISTIQ [Suspect]
     Dosage: UNK
     Dates: start: 20110809

REACTIONS (1)
  - Nasopharyngitis [Unknown]
